FAERS Safety Report 11322497 (Version 1)
Quarter: 2015Q3

REPORT INFORMATION
  Report Type: Report from Study
  Country: US (occurrence: US)
  Receive Date: 20150730
  Receipt Date: 20150730
  Transmission Date: 20151125
  Serious: Yes (Other)
  Sender: FDA-Public Use
  Company Number: US-AMGEN-USASL2015075913

PATIENT
  Age: 48 Year
  Sex: Female

DRUGS (1)
  1. ENBREL [Suspect]
     Active Substance: ETANERCEPT
     Indication: RHEUMATOID ARTHRITIS
     Dosage: UNK
     Route: 065
     Dates: start: 20130810

REACTIONS (6)
  - Fibromyalgia [Unknown]
  - Sleep apnoea syndrome [Unknown]
  - Pelvic prolapse [Unknown]
  - Adrenal insufficiency [Unknown]
  - Weight increased [Unknown]
  - Pancreatitis acute [Unknown]
